FAERS Safety Report 15206573 (Version 4)
Quarter: 2019Q4

REPORT INFORMATION
  Report Type: Spontaneous
  Country: US (occurrence: US)
  Receive Date: 20180727
  Receipt Date: 20191014
  Transmission Date: 20200122
  Serious: No
  Sender: FDA-Public Use
  Company Number: US-PFIZER INC-2018301895

PATIENT
  Sex: Male
  Weight: 94 kg

DRUGS (2)
  1. LYRICA [Suspect]
     Active Substance: PREGABALIN
     Indication: NERVE INJURY
     Dosage: UNK
  2. LYRICA [Suspect]
     Active Substance: PREGABALIN
     Dosage: 200 MG, 2X/DAY (200 MG TWICE A DAY BY MOUTH. ONCE IN THE MORNING AND ONCE IN THE AFTERNOON)
     Route: 048

REACTIONS (2)
  - Eye disorder [Unknown]
  - Withdrawal syndrome [Unknown]
